FAERS Safety Report 4411428-8 (Version None)
Quarter: 2004Q2

REPORT INFORMATION
  Report Type: 
  Country: None (occurrence: None)
  Receive Date: 20040630
  Receipt Date: 20040518
  Transmission Date: 20050107
  Serious: No
  Sender: FDA-Public Use
  Company Number: 04P-163-0261330-00

PATIENT
  Age: 61 Year
  Sex: Female
  Weight: 108.8633 kg

DRUGS (12)
  1. HUMIRA [Suspect]
     Indication: RHEUMATOID ARTHRITIS
     Dosage: 40 MG, 1 IN 2 WK, SUBCUTANEOUS
     Route: 058
     Dates: start: 20031001
  2. LOTREL [Concomitant]
  3. SALSALATE [Concomitant]
  4. BUMETANIDE [Concomitant]
  5. METHOTREXATE [Concomitant]
  6. POTASSIUM CHLORIDE [Concomitant]
  7. FOLIC ACID [Concomitant]
  8. PREDNISONE [Concomitant]
  9. VICODIN [Concomitant]
  10. ACID REDUCER [Concomitant]
  11. CALCIUM CARBONATE [Concomitant]
  12. ERGOCALCIFEROL [Concomitant]

REACTIONS (4)
  - HYPERTONIC BLADDER [None]
  - LACRIMATION INCREASED [None]
  - RHINORRHOEA [None]
  - TREMOR [None]
